FAERS Safety Report 16321666 (Version 1)
Quarter: 2019Q2

REPORT INFORMATION
  Report Type: Spontaneous
  Country: FR (occurrence: FR)
  Receive Date: 20190516
  Receipt Date: 20190516
  Transmission Date: 20190711
  Serious: Yes (Disabling)
  Sender: FDA-Public Use
  Company Number: FR-JNJFOC-20190512560

PATIENT
  Age: 29 Year
  Sex: Female
  Weight: 70 kg

DRUGS (5)
  1. ALMOGRAN [Suspect]
     Active Substance: ALMOTRIPTAN MALATE
     Indication: MIGRAINE
     Route: 048
     Dates: start: 20120101
  2. CYMBALTA [Suspect]
     Active Substance: DULOXETINE HYDROCHLORIDE
     Indication: DEPRESSIVE SYMPTOM
     Route: 048
     Dates: start: 20070101
  3. TALTZ [Suspect]
     Active Substance: IXEKIZUMAB
     Indication: PSORIASIS
     Route: 058
     Dates: start: 20170701
  4. EPITOMAX [Suspect]
     Active Substance: TOPIRAMATE
     Indication: MIGRAINE
     Route: 048
     Dates: start: 20120201
  5. MICROVAL [Suspect]
     Active Substance: LEVONORGESTREL
     Indication: CONTRACEPTION
     Route: 048
     Dates: start: 20160101

REACTIONS (4)
  - Visual acuity reduced [Not Recovered/Not Resolved]
  - Urticaria [Recovered/Resolved]
  - Keratitis [Not Recovered/Not Resolved]
  - Angioedema [Recovered/Resolved]

NARRATIVE: CASE EVENT DATE: 20180929
